FAERS Safety Report 5410624-0 (Version None)
Quarter: 2007Q3

REPORT INFORMATION
  Report Type: 
  Country: None (occurrence: None)
  Receive Date: 20070810
  Receipt Date: 20070420
  Transmission Date: 20080115
  Serious: No
  Sender: FDA-Public Use
  Company Number: A0648158A

PATIENT
  Age: 52 Year
  Sex: Female

DRUGS (3)
  1. PAXIL [Suspect]
     Indication: DEPRESSION
     Dosage: 15MG PER DAY
     Route: 048
     Dates: start: 20070301
  2. ZOLOFT [Suspect]
     Dosage: 50MG PER DAY
     Route: 048
     Dates: start: 20070901
  3. THYROID REPLACEMENT [Concomitant]

REACTIONS (3)
  - BREAST TENDERNESS [None]
  - DRUG ADMINISTRATION ERROR [None]
  - MENORRHAGIA [None]
